FAERS Safety Report 16243929 (Version 2)
Quarter: 2019Q4

REPORT INFORMATION
  Report Type: Spontaneous
  Country: US (occurrence: US)
  Receive Date: 20190426
  Receipt Date: 20191211
  Transmission Date: 20200122
  Serious: Yes (Other)
  Sender: FDA-Public Use
  Company Number: US-INCYTE CORPORATION-2019IN003758

PATIENT

DRUGS (3)
  1. JAKAFI [Suspect]
     Active Substance: RUXOLITINIB
     Indication: HAEMOPHAGOCYTIC LYMPHOHISTIOCYTOSIS
     Dosage: 10 MILLIGRAM, 3X/WEEK
     Route: 048
     Dates: start: 20190318
  2. JAKAFI [Suspect]
     Active Substance: RUXOLITINIB
     Indication: ATYPICAL HAEMOLYTIC URAEMIC SYNDROME
     Dosage: 5 MILLIGRAM, QD (DAY OF DIALYSIS)
     Route: 048
  3. JAKAFI [Suspect]
     Active Substance: RUXOLITINIB
     Indication: STILL^S DISEASE
     Dosage: 5 MILLIGRAM, BID (WHEN DIALYSIS WAS STOPPED)
     Route: 048

REACTIONS (4)
  - Blindness [Unknown]
  - Inappropriate schedule of product administration [Unknown]
  - Renal impairment [Unknown]
  - Off label use [Unknown]

NARRATIVE: CASE EVENT DATE: 20190318
